FAERS Safety Report 9189794 (Version 1)
Quarter: 2013Q1

REPORT INFORMATION
  Report Type: Spontaneous
  Country: US (occurrence: None)
  Receive Date: 20130322
  Receipt Date: 20130322
  Transmission Date: 20140127
  Serious: Yes (Life-Threatening)
  Sender: FDA-Public Use
  Company Number: None

PATIENT
  Age: 49 Year
  Sex: Female
  Weight: 49.9 kg

DRUGS (2)
  1. CLONIDINE [Suspect]
     Indication: MULTIPLE SCLEROSIS
     Route: 038
     Dates: start: 20130318, end: 20130320
  2. MORPHINE [Suspect]

REACTIONS (1)
  - Wrong drug administered [None]
